FAERS Safety Report 6266706-7 (Version None)
Quarter: 2009Q3

REPORT INFORMATION
  Report Type: 
  Country: None (occurrence: None)
  Receive Date: 20090714
  Receipt Date: 20070828
  Transmission Date: 20100115
  Serious: Yes (Hospitalization, Other)
  Sender: FDA-Public Use
  Company Number: US-ASTRAZENECA-2006UW24685

PATIENT
  Age: 19352 Day
  Sex: Female
  Weight: 121.6 kg

DRUGS (48)
  1. SEROQUEL [Suspect]
     Indication: DEPRESSION
     Route: 048
     Dates: start: 20010423, end: 20060504
  2. SEROQUEL [Suspect]
     Indication: BIPOLAR DISORDER
     Route: 048
     Dates: start: 20010423, end: 20060504
  3. SEROQUEL [Suspect]
     Dosage: 25-300 MG
     Route: 048
     Dates: start: 20000101, end: 20060301
  4. SEROQUEL [Suspect]
     Dosage: 25-300 MG
     Route: 048
     Dates: start: 20000101, end: 20060301
  5. AMITRIPTYLINE [Concomitant]
     Dates: start: 20070401, end: 20071001
  6. ZYPREXA [Concomitant]
     Dates: start: 20010101
  7. THORAZINE [Concomitant]
  8. ADIPEX [Concomitant]
     Dates: start: 20060508, end: 20060801
  9. TRAZODONE HCL [Concomitant]
     Indication: SLEEP DISORDER
     Dosage: 100-250 MG
  10. PROZAC [Concomitant]
     Dosage: 20-40 MG
     Route: 048
  11. PROZAC [Concomitant]
     Dosage: 90 MG ONCE A WEEK
  12. HYDROCHLOROTHIAZIDE [Concomitant]
  13. PREMATIN [Concomitant]
     Route: 048
  14. CRIXIVAN [Concomitant]
     Dosage: 1200-2400 MG
     Route: 048
  15. VICODIN [Concomitant]
     Route: 048
  16. OXYCONTIN [Concomitant]
     Dosage: 10-20 MG DISPENSED
     Route: 048
  17. LESCOL [Concomitant]
     Route: 048
  18. COMBIVIR [Concomitant]
     Indication: HIV INFECTION
     Dosage: 300-800 MG
     Route: 048
  19. ACIPHEX [Concomitant]
     Route: 048
  20. LASIX [Concomitant]
     Dosage: 40-80 MG
     Route: 048
  21. GLUCOTROL XL [Concomitant]
     Route: 048
  22. HYDROCHLOROTHIAZIDE [Concomitant]
     Route: 048
  23. VASOTEC [Concomitant]
     Route: 048
  24. SINGULAIR [Concomitant]
     Dosage: 10 MG DISPENSED
  25. VIOXX [Concomitant]
     Dosage: 12.5-50 MG
     Route: 048
  26. PERCOCET [Concomitant]
     Indication: HEADACHE
     Route: 048
  27. PERCOCET [Concomitant]
     Dosage: EVERY 4-6 HRS PRN
     Route: 048
  28. COMBIVENT [Concomitant]
  29. REYATAZ [Concomitant]
     Dosage: 300-400 MG
     Route: 048
  30. DITROPAN XL [Concomitant]
     Dosage: 5-10 MG
     Route: 048
  31. KLONOPIN [Concomitant]
     Route: 048
  32. EPIVIR [Concomitant]
     Dosage: 150-300 MG
     Route: 048
  33. SUSTIVA [Concomitant]
     Route: 048
  34. VIDEX [Concomitant]
     Route: 048
  35. LOPRESSOR [Concomitant]
     Route: 048
  36. AVANDIA [Concomitant]
     Route: 048
  37. ASPIRIN [Concomitant]
     Route: 048
  38. ASPIRIN [Concomitant]
     Route: 048
  39. ZOCOR [Concomitant]
     Dosage: 5-20 MG
     Route: 048
  40. HUMULIN R [Concomitant]
     Dosage: SLIDING SCALE SQ INSU ACHS
     Route: 058
  41. PERPHENAZINE [Concomitant]
     Indication: SLEEP DISORDER
  42. PERPHENAZINE [Concomitant]
  43. NORVIR [Concomitant]
     Route: 048
  44. NITROTAB [Concomitant]
     Route: 060
  45. CELEBREX [Concomitant]
     Route: 048
  46. CLARITIN [Concomitant]
  47. LIPITOR [Concomitant]
     Route: 048
  48. PREVACID [Concomitant]
     Route: 048

REACTIONS (6)
  - ANGINA PECTORIS [None]
  - BLOOD CHOLESTEROL INCREASED [None]
  - BLOOD TRIGLYCERIDES INCREASED [None]
  - CHEST PAIN [None]
  - COMA [None]
  - DIABETES MELLITUS [None]
